FAERS Safety Report 9571430 (Version 1)
Quarter: 2013Q4

REPORT INFORMATION
  Report Type: Spontaneous
  Country: PE (occurrence: PE)
  Receive Date: 20131001
  Receipt Date: 20131001
  Transmission Date: 20140711
  Serious: Yes (Other)
  Sender: FDA-Public Use
  Company Number: PE-SA-2013SA095025

PATIENT
  Age: 61 Year
  Sex: Female

DRUGS (2)
  1. COAPROVEL [Suspect]
     Indication: HYPERTENSION
     Dosage: 150/12.5 MG= 12 MG
     Route: 048
  2. BETALOC [Suspect]
     Indication: HYPERTENSION
     Route: 048

REACTIONS (1)
  - Conjunctival haemorrhage [Recovered/Resolved]
